FAERS Safety Report 4611049-8 (Version None)
Quarter: 2005Q1

REPORT INFORMATION
  Report Type: 
  Country: None (occurrence: None)
  Receive Date: 20050316
  Receipt Date: 20050316
  Transmission Date: 20050727
  Serious: Yes (Hospitalization)
  Sender: FDA-Public Use
  Company Number: None

PATIENT
  Age: 72 Year
  Sex: Male
  Weight: 105.2345 kg

DRUGS (13)
  1. ISOSORBIDE DINITRATE [Suspect]
     Indication: CORONARY ARTERY DISEASE
     Dosage: 10 MG PO TID
     Route: 048
  2. AMIODARONE [Concomitant]
  3. ASPIRIN [Concomitant]
  4. CLOPIDOGREL [Concomitant]
  5. FINASTERIDE [Concomitant]
  6. FOSINOPRIL [Concomitant]
  7. GEMFIBROZIL [Concomitant]
  8. GLIPIZIDE [Concomitant]
  9. METOPROLOL TARTRATE [Concomitant]
  10. OMEPRAZOLE [Concomitant]
  11. PAROXETINE HCL [Concomitant]
  12. TAMSULOSIN [Concomitant]
  13. RANITIDINE [Concomitant]

REACTIONS (4)
  - ASTHENIA [None]
  - CHEST PAIN [None]
  - DIZZINESS POSTURAL [None]
  - HYPERHIDROSIS [None]
